FAERS Safety Report 4634250-6 (Version None)
Quarter: 2005Q2

REPORT INFORMATION
  Report Type: 
  Country: None (occurrence: None)
  Receive Date: 20050413
  Receipt Date: 20050405
  Transmission Date: 20051028
  Serious: Yes (Other)
  Sender: FDA-Public Use
  Company Number: PHBS2005IT04925

PATIENT
  Age: 40 Year
  Sex: Male

DRUGS (3)
  1. MUSCORIL [Suspect]
     Dosage: 4 MG/DAY
     Route: 048
     Dates: start: 20050310, end: 20050314
  2. MEPRAL [Concomitant]
     Route: 048
     Dates: start: 20050311, end: 20050317
  3. VOLTAREN [Suspect]
     Dosage: 75 MG/DAY
     Route: 030
     Dates: start: 20050310, end: 20050314

REACTIONS (6)
  - ARTHRALGIA [None]
  - ASTHENIA [None]
  - BLOOD CREATINE PHOSPHOKINASE INCREASED [None]
  - NAUSEA [None]
  - RHABDOMYOLYSIS [None]
  - VOMITING [None]
